FAERS Safety Report 7495010-4 (Version None)
Quarter: 2011Q2

REPORT INFORMATION
  Report Type: 
  Country: None (occurrence: None)
  Receive Date: 20110520
  Receipt Date: 20110512
  Transmission Date: 20111010
  Serious: Yes (Other)
  Sender: FDA-Public Use
  Company Number: CA-ROCHE-757607

PATIENT
  Sex: Female
  Weight: 50 kg

DRUGS (13)
  1. BEVACIZUMAB [Suspect]
     Route: 042
     Dates: start: 20101230, end: 20110120
  2. CARBOPLATIN [Concomitant]
     Dosage: DOSE: 6 AUC
     Route: 042
     Dates: start: 20101230, end: 20110210
  3. OXYCONTIN [Concomitant]
     Indication: PAIN
     Route: 048
  4. OXYCODONE HCL [Concomitant]
     Indication: PAIN
     Dosage: FREQUENCY: PRN
     Route: 048
  5. LYRICA [Concomitant]
     Indication: PAIN
  6. PACLITAXEL [Suspect]
     Route: 042
     Dates: start: 20101230, end: 20110210
  7. LORAZEPAM [Concomitant]
  8. SENOKOT [Concomitant]
  9. DILAUDID [Concomitant]
     Indication: PAIN
     Dosage: DRUG: DILAUDID (CONTIN)
  10. HYDROMORPHONE HCL [Concomitant]
     Dosage: DRUG NAME: HYDROMORPHINE
  11. ZANAFLEX [Concomitant]
  12. COLACE [Concomitant]
  13. GRAVOL TAB [Concomitant]

REACTIONS (2)
  - VENOUS THROMBOSIS LIMB [None]
  - TRANSAMINASES INCREASED [None]
